FAERS Safety Report 5139587-2 (Version None)
Quarter: 2006Q4

REPORT INFORMATION
  Report Type: 
  Country: None (occurrence: None)
  Receive Date: 20061024
  Receipt Date: 20061017
  Transmission Date: 20070319
  Serious: Yes (Death)
  Sender: FDA-Public Use
  Company Number: 2006-149216-NL

PATIENT
  Age: 60 Year
  Sex: Male

DRUGS (4)
  1. DANAPAROID SODIUM [Suspect]
     Indication: HEPARIN-INDUCED THROMBOCYTOPENIA
     Dosage: 2500 + 400 + 300 + 150 ANTI_XA ONCE INTRAVENOUS (NOS) - SEE IMAGE
     Route: 042
  2. DANAPAROID SODIUM [Suspect]
     Indication: HEPARIN-INDUCED THROMBOCYTOPENIA
     Dosage: 2500 + 400 + 300 + 150 ANTI_XA ONCE INTRAVENOUS (NOS) - SEE IMAGE
     Route: 042
  3. LEPIRUDIN [Suspect]
     Indication: HEPARIN-INDUCED THROMBOCYTOPENIA
     Dosage: DF
  4. HEPARIN [Concomitant]

REACTIONS (4)
  - DIALYSIS DEVICE COMPLICATION [None]
  - MULTI-ORGAN FAILURE [None]
  - PLATELET COUNT DECREASED [None]
  - THROMBOSIS IN DEVICE [None]
